FAERS Safety Report 5651599-9 (Version None)
Quarter: 2008Q1

REPORT INFORMATION
  Report Type: 
  Country: None (occurrence: None)
  Receive Date: 20080305
  Receipt Date: 20080226
  Transmission Date: 20080703
  Serious: Yes (Hospitalization)
  Sender: FDA-Public Use
  Company Number: NL-ABBOTT-08P-114-0440411-00

PATIENT
  Age: 8 Year
  Sex: Male

DRUGS (1)
  1. KLACID PEDIATRIC SUSPENSION [Suspect]
     Indication: DRUG USE FOR UNKNOWN INDICATION
     Dates: start: 20070101, end: 20070101

REACTIONS (2)
  - GASTROENTERITIS [None]
  - RENAL FAILURE [None]
